FAERS Safety Report 4738060-0 (Version None)
Quarter: 2005Q3

REPORT INFORMATION
  Report Type: 
  Country: None (occurrence: None)
  Receive Date: 20050805
  Receipt Date: 20050805
  Transmission Date: 20060218
  Serious: Yes (Hospitalization)
  Sender: FDA-Public Use
  Company Number: None

PATIENT
  Age: 71 Year
  Sex: Male
  Weight: 83.5 kg

DRUGS (6)
  1. LOPRESSOR [Suspect]
     Indication: CORONARY ARTERY SURGERY
     Dosage: 25 MG - 50 MG
     Dates: start: 20050130
  2. DIGOXIN [Concomitant]
  3. CORDARONE [Concomitant]
  4. ALTACE [Concomitant]
  5. LASIX [Concomitant]
  6. POTASSIUM CHLORIDE [Concomitant]

REACTIONS (3)
  - BLOOD PRESSURE DECREASED [None]
  - HEART RATE DECREASED [None]
  - OXYGEN SATURATION DECREASED [None]
